FAERS Safety Report 14350549 (Version 2)
Quarter: 2018Q1

REPORT INFORMATION
  Report Type: Spontaneous
  Country: US (occurrence: US)
  Receive Date: 20180104
  Receipt Date: 20180201
  Transmission Date: 20180509
  Serious: Yes (Other)
  Sender: FDA-Public Use
  Company Number: US-PFIZER INC-2018001859

PATIENT
  Age: 63 Year
  Sex: Female
  Weight: 62.6 kg

DRUGS (5)
  1. XGEVA [Concomitant]
     Active Substance: DENOSUMAB
     Dosage: UNK
  2. FASLODEX [Concomitant]
     Active Substance: FULVESTRANT
     Dosage: UNK
  3. CEFPROZIL. [Suspect]
     Active Substance: CEFPROZIL
     Indication: MALAISE
     Dosage: 50 MG, TWICE DAILY (FOR 10 DAYS)
     Route: 048
  4. IBRANCE [Suspect]
     Active Substance: PALBOCICLIB
     Indication: BREAST CANCER METASTATIC
     Dosage: 125 MG, CYCLIC (TWICE DAILY)
     Route: 048
     Dates: start: 20170913, end: 20170928
  5. IBRANCE [Suspect]
     Active Substance: PALBOCICLIB
     Dosage: 100 MG, CYCLIC (ONCE DAILY, 21 DAY CYCLE)
     Route: 048
     Dates: start: 20171021

REACTIONS (3)
  - Malaise [Unknown]
  - Product use issue [Recovered/Resolved]
  - White blood cell count decreased [Unknown]

NARRATIVE: CASE EVENT DATE: 20170913
